FAERS Safety Report 5488942-X (Version None)
Quarter: 2007Q4

REPORT INFORMATION
  Report Type: 
  Country: None (occurrence: None)
  Receive Date: 20071016
  Receipt Date: 20071003
  Transmission Date: 20080405
  Serious: Yes (Hospitalization)
  Sender: FDA-Public Use
  Company Number: 2007BI019839

PATIENT
  Age: 42 Year
  Sex: Female
  Weight: 85 kg

DRUGS (5)
  1. AVONEX [Suspect]
     Indication: MULTIPLE SCLEROSIS
     Dosage: 30 UG; QW; IM
     Route: 030
     Dates: start: 20070828
  2. ZANAFLEX [Concomitant]
  3. EFFEXOR [Concomitant]
  4. CALCICHEW [Concomitant]
  5. ELOTROXIN [Concomitant]

REACTIONS (5)
  - BACK PAIN [None]
  - BLISTER [None]
  - INFECTION [None]
  - KIDNEY INFECTION [None]
  - MULTIPLE SCLEROSIS RELAPSE [None]
